FAERS Safety Report 5067155-X (Version None)
Quarter: 2006Q3

REPORT INFORMATION
  Report Type: 
  Country: None (occurrence: None)
  Receive Date: 20060801
  Receipt Date: 20060717
  Transmission Date: 20061208
  Serious: Yes (Hospitalization)
  Sender: FDA-Public Use
  Company Number: FR-BOEHRINGER INGELHEIM PHARMACEUTICALS, INC.-2006-FF-00620FF

PATIENT
  Age: 39 Year
  Sex: Female
  Weight: 60 kg

DRUGS (6)
  1. CATAPRES [Suspect]
     Indication: ESSENTIAL HYPERTENSION
     Route: 048
     Dates: start: 20030201
  2. ADEPAL [Concomitant]
     Indication: CONTRACEPTION
     Route: 048
     Dates: end: 20030131
  3. LEVOTHYROXINE SODIUM [Concomitant]
     Indication: HYPOTHYROIDISM
     Route: 048
  4. TEMESTA [Concomitant]
     Indication: ANXIETY
     Route: 048
     Dates: start: 20030201
  5. FOSINOPRIL SODIUM AND HYDROCHLOROTHIAZIDE [Concomitant]
     Indication: ESSENTIAL HYPERTENSION
     Route: 048
     Dates: end: 20030131
  6. ALPRAZOLAM [Concomitant]
     Indication: ANXIETY
     Route: 048
     Dates: end: 20030131

REACTIONS (2)
  - ABORTION INDUCED [None]
  - DRUG EXPOSURE DURING PREGNANCY [None]
